FAERS Safety Report 8142787-0 (Version None)
Quarter: 2012Q1

REPORT INFORMATION
  Report Type: 
  Country: None (occurrence: None)
  Receive Date: 20120216
  Receipt Date: 20120210
  Transmission Date: 20120608
  Serious: Yes (Disabling)
  Sender: FDA-Public Use
  Company Number: US-MERCK-1202USA01746

PATIENT
  Age: 37 Year
  Sex: Male

DRUGS (7)
  1. SYNTHROID [Concomitant]
     Route: 065
  2. METFORMIN HCL [Suspect]
     Route: 065
  3. JANUMET [Suspect]
     Indication: HYPERGLYCAEMIA
     Route: 048
     Dates: start: 20110101, end: 20110601
  4. JANUMET [Suspect]
     Indication: TYPE 2 DIABETES MELLITUS
     Route: 048
     Dates: start: 20110101, end: 20110601
  5. GLIPIZIDE [Suspect]
     Route: 065
  6. VYTORIN [Concomitant]
     Route: 048
  7. JANUVIA [Suspect]
     Route: 065
     Dates: start: 20111001

REACTIONS (5)
  - EYE DISORDER [None]
  - VISUAL IMPAIRMENT [None]
  - HEADACHE [None]
  - BLOOD GLUCOSE INCREASED [None]
  - BLOOD GLUCOSE DECREASED [None]
